FAERS Safety Report 12254669 (Version 1)
Quarter: 2016Q2

REPORT INFORMATION
  Report Type: Spontaneous
  Country: US (occurrence: US)
  Receive Date: 20160411
  Receipt Date: 20160411
  Transmission Date: 20160815
  Serious: No
  Sender: FDA-Public Use
  Company Number: US-SA-2015SA177273

PATIENT

DRUGS (1)
  1. ALLEGRA D-12 HOUR [Suspect]
     Active Substance: FEXOFENADINE HYDROCHLORIDE\PSEUDOEPHEDRINE HYDROCHLORIDE
     Dosage: TAKING FEXOFENADINE HYDROCHLORIDE/PSEUDOEPHEDRINE HYDROCHLORIDE FOR 3 YEARS NOW
     Route: 048

REACTIONS (6)
  - Nausea [Unknown]
  - Drug effect prolonged [Unknown]
  - Wrong technique in product usage process [Unknown]
  - Drug effect delayed [Unknown]
  - Feeling of body temperature change [Unknown]
  - Palpitations [Unknown]
